FAERS Safety Report 4937220-3 (Version None)
Quarter: 2006Q1

REPORT INFORMATION
  Report Type: 
  Country: None (occurrence: None)
  Receive Date: 20060307
  Receipt Date: 20060307
  Transmission Date: 20060701
  Serious: No
  Sender: FDA-Public Use
  Company Number: None

PATIENT
  Age: 17 Year
  Sex: Female
  Weight: 63.5036 kg

DRUGS (1)
  1. ACCUTANE [Suspect]

REACTIONS (1)
  - DRUG DOSE OMISSION [None]
